FAERS Safety Report 4463045-1 (Version None)
Quarter: 2004Q3

REPORT INFORMATION
  Report Type: 
  Country: None (occurrence: None)
  Receive Date: 20040928
  Receipt Date: 20040916
  Transmission Date: 20050211
  Serious: Yes (Hospitalization)
  Sender: FDA-Public Use
  Company Number: K200401408

PATIENT
  Age: 32 Year
  Sex: Male

DRUGS (5)
  1. SEPTRA [Suspect]
     Indication: PNEUMOCYSTIS CARINII PNEUMONIA
     Dosage: ORAL
     Route: 048
     Dates: start: 20030101, end: 20030101
  2. NEVIRAPINE (NEVIRAPINE) TABLET, 200MG [Suspect]
     Indication: HIV INFECTION
     Dosage: SEE IMAGE
     Dates: start: 20030601, end: 20030615
  3. NEVIRAPINE (NEVIRAPINE) TABLET, 200MG [Suspect]
     Indication: HIV INFECTION
     Dosage: SEE IMAGE
     Dates: start: 20030616, end: 20030627
  4. PREDNISOLONE [Concomitant]
  5. COMBIVIR [Concomitant]

REACTIONS (5)
  - ALANINE AMINOTRANSFERASE INCREASED [None]
  - DRY MOUTH [None]
  - SKIN HYPERPIGMENTATION [None]
  - STEVENS-JOHNSON SYNDROME [None]
  - VARICELLA [None]
